FAERS Safety Report 5772145-5 (Version None)
Quarter: 2008Q2

REPORT INFORMATION
  Report Type: 
  Country: None (occurrence: None)
  Receive Date: 20080612
  Receipt Date: 20080612
  Transmission Date: 20081010
  Serious: No
  Sender: FDA-Public Use
  Company Number: None

PATIENT
  Sex: Male

DRUGS (1)
  1. CIPROFLOXACIN [Suspect]
     Dosage: TWICE DAILY PO SEVERAL DAYS
     Route: 048

REACTIONS (2)
  - DERMATITIS ALLERGIC [None]
  - DRUG ERUPTION [None]
